FAERS Safety Report 8188720-7 (Version None)
Quarter: 2012Q1

REPORT INFORMATION
  Report Type: 
  Country: None (occurrence: None)
  Receive Date: 20120306
  Receipt Date: 20120229
  Transmission Date: 20120608
  Serious: Yes (Hospitalization)
  Sender: FDA-Public Use
  Company Number: JP-BAYER-2012-018033

PATIENT
  Age: 73 Year
  Sex: Male
  Weight: 65 kg

DRUGS (4)
  1. PILSICAINIDE HYDROCHLORIDE [Concomitant]
     Indication: ATRIAL FIBRILLATION
     Dosage: DAILY DOSE 50 MG
     Dates: start: 20070101
  2. ASPIRIN [Suspect]
     Indication: ATRIAL FIBRILLATION
     Dosage: DAILY DOSE 100 MG
     Route: 048
     Dates: start: 20070101
  3. NITRENDIPINE [Concomitant]
     Indication: HYPERTENSION
     Dosage: DAILY DOSE 10 MG
     Route: 048
  4. NICORANDIL [Concomitant]
     Indication: ATRIAL FIBRILLATION
     Dosage: DAILY DOSE 50 MG
     Dates: start: 20070101

REACTIONS (1)
  - VASCULAR PSEUDOANEURYSM [None]
